FAERS Safety Report 8336762-0 (Version None)
Quarter: 2012Q2

REPORT INFORMATION
  Report Type: 
  Country: None (occurrence: None)
  Receive Date: 20120504
  Receipt Date: 20120423
  Transmission Date: 20120825
  Serious: Yes (Hospitalization)
  Sender: FDA-Public Use
  Company Number: US-JNJFOC-20120402865

PATIENT
  Sex: Female
  Weight: 95.26 kg

DRUGS (12)
  1. TRIHEXYPHENIDYL HCL [Concomitant]
     Route: 065
  2. RISPERDAL [Suspect]
     Indication: SCHIZOAFFECTIVE DISORDER
     Route: 048
  3. RISPERDAL [Suspect]
     Dosage: 1/2 OF A 2 MG TABLET
     Route: 048
     Dates: start: 20120313
  4. ABILIFY [Suspect]
     Indication: BIPOLAR DISORDER
     Route: 048
  5. VITAMINS NOS [Concomitant]
     Indication: VITAMIN SUPPLEMENTATION
     Route: 048
  6. RISPERDAL [Suspect]
     Route: 048
     Dates: start: 19940901
  7. RISPERDAL [Suspect]
     Indication: BIPOLAR DISORDER
     Route: 048
  8. RISPERDAL [Suspect]
     Route: 048
     Dates: start: 19940901
  9. LORAZEPAM [Concomitant]
     Indication: SLEEP DISORDER
     Route: 048
  10. RISPERDAL [Suspect]
     Dosage: 1/2 OF A 2 MG TABLET
     Route: 048
     Dates: start: 20120313
  11. ABILIFY [Suspect]
     Indication: SCHIZOAFFECTIVE DISORDER
     Route: 048
  12. IBUPROFEN [Concomitant]
     Dosage: WITH FOOD
     Route: 065

REACTIONS (13)
  - OEDEMA [None]
  - PRODUCT QUALITY ISSUE [None]
  - SLOW SPEECH [None]
  - HEAD INJURY [None]
  - ADVERSE EVENT [None]
  - HEADACHE [None]
  - PAIN [None]
  - WEIGHT INCREASED [None]
  - INJURY [None]
  - HYPOTONIA [None]
  - INSOMNIA [None]
  - TARDIVE DYSKINESIA [None]
  - WRONG TECHNIQUE IN DRUG USAGE PROCESS [None]
